FAERS Safety Report 5709336-5 (Version None)
Quarter: 2008Q2

REPORT INFORMATION
  Report Type: 
  Country: None (occurrence: None)
  Receive Date: 20080417
  Receipt Date: 20080417
  Transmission Date: 20081010
  Serious: No
  Sender: FDA-Public Use
  Company Number: None

PATIENT
  Age: 79 Year
  Sex: Female
  Weight: 80.2867 kg

DRUGS (1)
  1. RANEXA [Suspect]
     Indication: CARDIAC DISORDER
     Dosage: 500 MG  2 A DAY
     Dates: start: 20071204, end: 20080403

REACTIONS (2)
  - DRY MOUTH [None]
  - DYSPHAGIA [None]
